FAERS Safety Report 15235939 (Version 1)
Quarter: 2018Q3

REPORT INFORMATION
  Report Type: Spontaneous
  Country: US (occurrence: US)
  Receive Date: 20180710
  Receipt Date: 20180710
  Transmission Date: 20181010
  Serious: Yes (Hospitalization, Other)
  Sender: FDA-Public Use
  Company Number: None

PATIENT
  Age: 50 Year
  Sex: Female
  Weight: 60.3 kg

DRUGS (10)
  1. WOMEN^S ULTRA MULTI VITAMIN [Concomitant]
  2. PRIMIDONE. [Concomitant]
     Active Substance: PRIMIDONE
  3. COQ10 [Concomitant]
     Active Substance: UBIDECARENONE
  4. PROPANOL [Concomitant]
     Active Substance: PROPRANOLOL HYDROCHLORIDE
  5. IMITREX [Concomitant]
     Active Substance: SUMATRIPTAN SUCCINATE
  6. RED YEAST RICE [Concomitant]
     Active Substance: DIETARY SUPPLEMENT
  7. MAGNESIUM [Concomitant]
     Active Substance: MAGNESIUM
  8. LIPITOR [Suspect]
     Active Substance: ATORVASTATIN CALCIUM
     Indication: BLOOD CHOLESTEROL INCREASED
     Dosage: ?          QUANTITY:30 TABLET(S);?
     Route: 048
     Dates: start: 20160301, end: 20180616
  9. TROKENDI XR [Concomitant]
     Active Substance: TOPIRAMATE
  10. FISH OIL [Concomitant]
     Active Substance: FISH OIL

REACTIONS (3)
  - Muscle spasms [None]
  - Tremor [None]
  - Injury [None]

NARRATIVE: CASE EVENT DATE: 20160616
